FAERS Safety Report 10950216 (Version 1)
Quarter: 2015Q1

REPORT INFORMATION
  Report Type: Report from Study
  Country: JP (occurrence: JP)
  Receive Date: 20150324
  Receipt Date: 20150324
  Transmission Date: 20150721
  Serious: Yes (Hospitalization)
  Sender: FDA-Public Use
  Company Number: PHJP2015JP003277

PATIENT
  Age: 1 Year
  Sex: Male
  Weight: 5.8 kg

DRUGS (16)
  1. BLINDED ACZ885 [Suspect]
     Active Substance: CANAKINUMAB
     Indication: HYPER IGD SYNDROME
     Dosage: CODE NOT BROKEN
     Route: 058
  2. PLACEBO [Suspect]
     Active Substance: UNSPECIFIED INGREDIENT
     Indication: HYPER IGD SYNDROME
     Dosage: CODE NOT BROKEN
     Route: 058
  3. GASTER [Concomitant]
     Active Substance: FAMOTIDINE
     Indication: PROPHYLAXIS
     Dosage: 4 MG, QD
     Route: 050
     Dates: start: 20131202
  4. MUCODYNE [Concomitant]
     Active Substance: CARBOCYSTEINE
     Indication: BRONCHIAL SECRETION RETENTION
     Dosage: 0.1 G, TID
     Route: 065
     Dates: start: 20140917
  5. MUCOSAL /JPN/ [Concomitant]
     Indication: SPUTUM RETENTION
  6. MEDROL [Concomitant]
     Active Substance: METHYLPREDNISOLONE
     Dosage: 4 MG, QD
     Route: 050
     Dates: start: 20150313
  7. MEDROL [Concomitant]
     Active Substance: METHYLPREDNISOLONE
     Dosage: 5 MG, QD
     Route: 050
     Dates: start: 20150223, end: 20150312
  8. MUCOSAL /JPN/ [Concomitant]
     Indication: AIRWAY SECRETION CLEARANCE THERAPY
     Dosage: 0.1 G, TID
     Route: 065
     Dates: start: 20140917
  9. MUCODYNE [Concomitant]
     Active Substance: CARBOCYSTEINE
     Indication: SPUTUM RETENTION
  10. AZUNOL                             /00517002/ [Concomitant]
     Indication: ECZEMA
     Dosage: BID
     Route: 061
     Dates: start: 20150122
  11. LOCOID [Concomitant]
     Active Substance: HYDROCORTISONE BUTYRATE
     Indication: ECZEMA
     Dosage: BID
     Route: 061
     Dates: start: 20140205
  12. MEDROL [Concomitant]
     Active Substance: METHYLPREDNISOLONE
     Indication: HYPER IGD SYNDROME
     Dosage: 0.75 MG, BID
     Route: 050
     Dates: start: 20141129, end: 20150222
  13. BLINDED NO TREATMENT RECEIVED [Suspect]
     Active Substance: UNSPECIFIED INGREDIENT
     Indication: HYPER IGD SYNDROME
     Dosage: CODE NOT BROKEN
     Route: 058
  14. MIYA-BM [Concomitant]
     Active Substance: CLOSTRIDIUM BUTYRICUM SPORES STRAIN M-55
     Indication: HYPER IGD SYNDROME
     Dosage: 0.16 G, TID
     Route: 065
     Dates: start: 20130822
  15. L CARTIN [Concomitant]
     Indication: MILK ALLERGY
     Dosage: 33 MG, TID
     Route: 065
     Dates: start: 20140501
  16. BIOTIN [Concomitant]
     Active Substance: BIOTIN
     Indication: MILK ALLERGY
     Dosage: 0.008 MG, BID
     Route: 065
     Dates: start: 20140522

REACTIONS (1)
  - Immune thrombocytopenic purpura [Recovering/Resolving]

NARRATIVE: CASE EVENT DATE: 20150212
